FAERS Safety Report 4417865-X (Version None)
Quarter: 2004Q2

REPORT INFORMATION
  Report Type: 
  Country: None (occurrence: None)
  Receive Date: 20040621
  Receipt Date: 20040428
  Transmission Date: 20050107
  Serious: Yes (Other)
  Sender: FDA-Public Use
  Company Number: PHEH2004US04072

PATIENT
  Age: 62 Year
  Sex: Male

DRUGS (1)
  1. ZOMETA [Suspect]
     Dates: start: 20030301, end: 20031001

REACTIONS (3)
  - METASTATIC NEOPLASM [None]
  - OSTEONECROSIS [None]
  - TOOTH EXTRACTION [None]
